FAERS Safety Report 7170549-X (Version None)
Quarter: 2010Q4

REPORT INFORMATION
  Report Type: 
  Country: None (occurrence: None)
  Receive Date: 20101217
  Receipt Date: 20101213
  Transmission Date: 20110411
  Serious: Yes (Other)
  Sender: FDA-Public Use
  Company Number: US-AMGEN-QUU422561

PATIENT

DRUGS (7)
  1. NPLATE [Suspect]
     Indication: IDIOPATHIC THROMBOCYTOPENIC PURPURA
     Dosage: 3270 A?G, QWK
     Route: 058
     Dates: start: 20090422, end: 20090902
  2. SIMVASTATIN [Concomitant]
  3. RAMIPRIL [Concomitant]
  4. DIGOXIN [Concomitant]
  5. AMIODARONE HYDROCHLORIDE [Concomitant]
  6. AVACORE [Concomitant]
  7. TORSEMIDE [Concomitant]

REACTIONS (1)
  - DIABETES MELLITUS [None]
